FAERS Safety Report 8817628 (Version 1)
Quarter: 2012Q4

REPORT INFORMATION
  Report Type: 
  Country: US (occurrence: US)
  Receive Date: 20121001
  Receipt Date: 20121001
  Transmission Date: 20130627
  Serious: No
  Sender: FDA-Public Use
  Company Number: US-009507513-1209USA005296

PATIENT
  Sex: Male

DRUGS (2)
  1. REBETOL [Suspect]
     Dosage: UNK
     Route: 048
     Dates: start: 20100101
  2. PEGASYS [Concomitant]
     Dosage: UNK
     Dates: start: 20100101

REACTIONS (1)
  - Disease recurrence [Unknown]
